FAERS Safety Report 4718652-5 (Version None)
Quarter: 2005Q3

REPORT INFORMATION
  Report Type: 
  Country: None (occurrence: None)
  Receive Date: 20050719
  Receipt Date: 20041118
  Transmission Date: 20060218
  Serious: Yes (Hospitalization, Other)
  Sender: FDA-Public Use
  Company Number: 2004240087US

PATIENT
  Age: 81 Year
  Sex: Female
  Weight: 61.2356 kg

DRUGS (13)
  1. CELEBREX [Suspect]
     Indication: OSTEOARTHRITIS
     Dosage: 200 MG (100 MG, 2 IN 1 D), ORAL
     Route: 048
     Dates: start: 20010504
  2. CELEBREX [Suspect]
     Indication: PAIN
     Dosage: 200 MG (100 MG, 2 IN 1 D), ORAL
     Route: 048
     Dates: start: 20010504
  3. HYDROCHLOROTHIAZIDE [Concomitant]
  4. ALENDRONATE SODIUM [Concomitant]
  5. QUININE SULFATE [Concomitant]
  6. PANTOPRAZOLE [Concomitant]
  7. POTASSIUM [Concomitant]
  8. ATENOLOL [Concomitant]
  9. LOSARTAN POTASSIUM [Concomitant]
  10. LOVASTATIN [Concomitant]
  11. CALCIUM GLUCONATE [Concomitant]
  12. MULTIVITAMINS (ASCORBIC ACID, ERGOCALCIFEROL, FOLIC ACID, NICOTINAMIDE [Concomitant]
  13. BECOSYM FORTE (NICOTINAMIDE, PYRIDOXINE HYDROCHLORIDE, RIBOFLAVIN, THI [Concomitant]

REACTIONS (1)
  - MYOCARDIAL INFARCTION [None]
